FAERS Safety Report 5897341-8 (Version None)
Quarter: 2008Q3

REPORT INFORMATION
  Report Type: 
  Country: None (occurrence: None)
  Receive Date: 20080925
  Receipt Date: 20071127
  Transmission Date: 20090109
  Serious: No
  Sender: FDA-Public Use
  Company Number: A0696073A

PATIENT
  Sex: Male

DRUGS (1)
  1. EPZICOM [Suspect]
     Indication: DRUG USE FOR UNKNOWN INDICATION
     Route: 048

REACTIONS (1)
  - DRUG SCREEN FALSE POSITIVE [None]
